FAERS Safety Report 15918801 (Version 1)
Quarter: 2019Q1

REPORT INFORMATION
  Report Type: Spontaneous
  Country: IT (occurrence: IT)
  Receive Date: 20190205
  Receipt Date: 20190205
  Transmission Date: 20190417
  Serious: Yes (Other)
  Sender: FDA-Public Use
  Company Number: IT-SAMSUNG BIOEPIS-SB-2019-00447

PATIENT
  Age: 25 Year
  Sex: Female

DRUGS (5)
  1. PREDNISONE. [Concomitant]
     Active Substance: PREDNISONE
     Dosage: UNKNOWN
     Route: 065
  2. METHOTREXATE. [Concomitant]
     Active Substance: METHOTREXATE
     Indication: BEHCET^S SYNDROME
     Dosage: UNKNOWN
     Route: 065
  3. PREDNISONE. [Concomitant]
     Active Substance: PREDNISONE
     Indication: PRODUCT USED FOR UNKNOWN INDICATION
     Route: 048
  4. INFLIXIMAB [Suspect]
     Active Substance: INFLIXIMAB
     Dosage: UNKNOWN
     Route: 065
  5. INFLIXIMAB [Suspect]
     Active Substance: INFLIXIMAB
     Indication: BEHCET^S SYNDROME
     Dosage: UNKNOWN, DOSAGE FORM: LYOPHILIZED POWDER
     Route: 042

REACTIONS (7)
  - Product use in unapproved indication [Unknown]
  - Optic neuritis [Recovered/Resolved]
  - Uhthoff^s phenomenon [Unknown]
  - Multiple sclerosis [Recovering/Resolving]
  - Eye pain [Recovering/Resolving]
  - Visual impairment [Recovering/Resolving]
  - Off label use [Unknown]
